FAERS Safety Report 16268878 (Version 2)
Quarter: 2019Q2

REPORT INFORMATION
  Report Type: Spontaneous
  Country: FR (occurrence: FR)
  Receive Date: 20190503
  Receipt Date: 20190611
  Transmission Date: 20190711
  Serious: Yes (Other)
  Sender: FDA-Public Use
  Company Number: FR-AMGEN-FRASP2019067295

PATIENT
  Sex: Female

DRUGS (1)
  1. MIMPARA [Suspect]
     Active Substance: CINACALCET HYDROCHLORIDE
     Indication: BLOOD CALCIUM INCREASED
     Dosage: 60 UNK
     Route: 048
     Dates: start: 201904

REACTIONS (2)
  - Blood viscosity decreased [Unknown]
  - Haemangioma of skin [Unknown]

NARRATIVE: CASE EVENT DATE: 201904
